FAERS Safety Report 7932974-6 (Version None)
Quarter: 2011Q4

REPORT INFORMATION
  Report Type: 
  Country: None (occurrence: None)
  Receive Date: 20111122
  Receipt Date: 20111110
  Transmission Date: 20120403
  Serious: Yes (Hospitalization, Other)
  Sender: FDA-Public Use
  Company Number: PHHY2011JP11999

PATIENT
  Sex: Male

DRUGS (13)
  1. ADALAT [Concomitant]
     Dosage: 20 MG, UNK
     Route: 048
  2. ASPIRIN [Concomitant]
     Dosage: 100 MG, UNK
     Route: 048
  3. LASIX [Concomitant]
     Dosage: 40 MG, DAILY
     Route: 048
     Dates: start: 20110324
  4. WARFARIN SODIUM [Concomitant]
     Dosage: 1.25 MG, UNK
     Route: 048
  5. CRESTOR [Concomitant]
     Dosage: 2.5 MG, DAILY
     Route: 048
     Dates: start: 20110324
  6. METHYCOBAL [Concomitant]
     Dosage: 1.5 MG, UNK
     Route: 048
  7. CANDESARTAN CILEXETIL [Concomitant]
     Dosage: 12 MG
     Route: 048
  8. ADALAT [Concomitant]
     Dosage: 40 MG, UNK
     Route: 048
  9. TASIGNA [Suspect]
     Indication: CHRONIC MYELOID LEUKAEMIA
     Dosage: 200 MG, DAILY
     Route: 048
     Dates: start: 20090709, end: 20110126
  10. TASIGNA [Suspect]
     Dosage: 200 MG, DAILY
     Route: 048
     Dates: start: 20110414
  11. CANDESARTAN CILEXETIL [Concomitant]
     Dosage: 8 MG, UNK
     Route: 048
  12. PROPAFENONE HYDROCHLORIDE [Concomitant]
     Dosage: 450 MG, UNK
     Route: 048
  13. WARFARIN SODIUM [Concomitant]
     Dosage: 1.5 MG, UNK
     Route: 048

REACTIONS (6)
  - BLISTER [None]
  - HYPERURICAEMIA [None]
  - PAIN [None]
  - HERPES ZOSTER [None]
  - CARDIAC FAILURE [None]
  - MYOCARDIAL INFARCTION [None]
